FAERS Safety Report 5391478-8 (Version None)
Quarter: 2007Q3

REPORT INFORMATION
  Report Type: 
  Country: None (occurrence: None)
  Receive Date: 20070719
  Receipt Date: 20070711
  Transmission Date: 20080115
  Serious: Yes (Other)
  Sender: FDA-Public Use
  Company Number: HQWYE018412JUL07

PATIENT
  Sex: Male
  Weight: 64 kg

DRUGS (11)
  1. MYLOTARG [Suspect]
     Indication: ACUTE MYELOID LEUKAEMIA
     Route: 041
     Dates: start: 20070111, end: 20070111
  2. MYLOTARG [Suspect]
     Route: 041
     Dates: start: 20070205, end: 20070205
  3. FLUTIDE DISKUS [Concomitant]
     Dosage: 200 UG/DAY
     Route: 055
     Dates: start: 20030101
  4. ALOSENN [Concomitant]
     Dosage: 3 DF/DAY
     Route: 048
     Dates: start: 20030101
  5. FUNGUARD [Concomitant]
     Indication: PROPHYLAXIS
     Dosage: 150 MG/DAY
     Route: 041
     Dates: start: 20070210
  6. FLUCONAZOLE [Concomitant]
     Indication: PROPHYLAXIS
     Dosage: 400 MG/DAY
     Route: 048
     Dates: start: 20061127, end: 20070209
  7. MAXIPIME [Concomitant]
     Indication: PYREXIA
     Dosage: 2 G/DAY
     Route: 041
     Dates: start: 20070121, end: 20070127
  8. MAXIPIME [Concomitant]
     Dosage: 2 MG/DAY
     Route: 041
     Dates: start: 20070207, end: 20070209
  9. DORZOLAMIDE HCL [Concomitant]
     Indication: PYREXIA
     Dosage: 0.5 G/DAY
     Route: 041
     Dates: start: 20070209, end: 20070215
  10. AMLODIPINE [Concomitant]
     Dosage: 5 MG
     Route: 048
     Dates: start: 20030101
  11. BAKTAR [Concomitant]
     Indication: PROPHYLAXIS
     Dosage: 1 DF/DAY
     Route: 048
     Dates: start: 20061127

REACTIONS (6)
  - C-REACTIVE PROTEIN INCREASED [None]
  - HAEMATOCRIT DECREASED [None]
  - HAEMOGLOBIN DECREASED [None]
  - NEUTROPHIL COUNT DECREASED [None]
  - PLATELET COUNT DECREASED [None]
  - RED BLOOD CELL COUNT DECREASED [None]
